FAERS Safety Report 21048487 (Version 2)
Quarter: 2022Q3

REPORT INFORMATION
  Report Type: Report from Study
  Country: US (occurrence: US)
  Receive Date: 20220706
  Receipt Date: 20220809
  Transmission Date: 20221027
  Serious: Yes (Hospitalization, Other)
  Sender: FDA-Public Use
  Company Number: US-HORIZON THERAPEUTICS-HZN-2022-002731

PATIENT

DRUGS (2)
  1. ACTIMMUNE [Suspect]
     Active Substance: INTERFERON GAMMA-1B
     Indication: Neutrophil function disorder
     Dosage: FIRST DOSE
     Route: 065
     Dates: start: 20220323
  2. ACTIMMUNE [Suspect]
     Active Substance: INTERFERON GAMMA-1B
     Dosage: 0.5ML/VL; 30 MCG SUBCUTANEOUS THREE TIMES WEEKLY
     Route: 058
     Dates: start: 202203

REACTIONS (5)
  - Pneumonia [Recovering/Resolving]
  - Influenza [Recovering/Resolving]
  - Hordeolum [Recovering/Resolving]
  - Bone marrow disorder [Unknown]
  - Malaise [Recovering/Resolving]

NARRATIVE: CASE EVENT DATE: 20220101
